FAERS Safety Report 5925229-2 (Version None)
Quarter: 2008Q4

REPORT INFORMATION
  Report Type: 
  Country: None (occurrence: None)
  Receive Date: 20081020
  Receipt Date: 20081020
  Transmission Date: 20090506
  Serious: Yes (Other)
  Sender: FDA-Public Use
  Company Number: None

PATIENT
  Age: 68 Year
  Sex: Female
  Weight: 39.4629 kg

DRUGS (1)
  1. MIRAPEX [Suspect]

REACTIONS (1)
  - PATHOLOGICAL GAMBLING [None]
